FAERS Safety Report 13652534 (Version 1)
Quarter: 2017Q2

REPORT INFORMATION
  Report Type: Spontaneous
  Country: US (occurrence: US)
  Receive Date: 20170614
  Receipt Date: 20170614
  Transmission Date: 20170830
  Serious: No
  Sender: FDA-Public Use
  Company Number: US-ROCHE-1319467

PATIENT
  Sex: Male

DRUGS (1)
  1. XELODA [Suspect]
     Active Substance: CAPECITABINE
     Indication: PRODUCT USED FOR UNKNOWN INDICATION
     Dosage: FOR 14 DAYS THEN 7 DAY BREAK
     Route: 048

REACTIONS (7)
  - Erythema [Unknown]
  - Lacrimation increased [Unknown]
  - Pain in extremity [Unknown]
  - Eye pruritus [Unknown]
  - Skin exfoliation [Unknown]
  - Eye irritation [Unknown]
  - Ocular hyperaemia [Unknown]
